FAERS Safety Report 7894114-1 (Version None)
Quarter: 2011Q4

REPORT INFORMATION
  Report Type: 
  Country: None (occurrence: None)
  Receive Date: 20111104
  Receipt Date: 20111103
  Transmission Date: 20120403
  Serious: Yes (Death)
  Sender: FDA-Public Use
  Company Number: US-ROXANE LABORATORIES, INC.-2011-RO-01586RO

PATIENT
  Sex: Male

DRUGS (5)
  1. NORCO [Concomitant]
  2. MORPHINE [Suspect]
  3. WEIGHT GAIN MEDS [Concomitant]
  4. NAUSEA MEDS [Concomitant]
  5. ANTIBIOTICS [Concomitant]

REACTIONS (1)
  - DEATH [None]
